FAERS Safety Report 15791251 (Version 1)
Quarter: 2019Q1

REPORT INFORMATION
  Report Type: Spontaneous
  Country: US (occurrence: US)
  Receive Date: 20190104
  Receipt Date: 20190104
  Transmission Date: 20190417
  Serious: Yes (Death)
  Sender: FDA-Public Use
  Company Number: US-OTSUKA-2018_035608

PATIENT
  Age: 87 Year
  Sex: Female

DRUGS (3)
  1. NUEDEXTA [Suspect]
     Active Substance: DEXTROMETHORPHAN HYDROBROMIDE\QUINIDINE SULFATE
     Indication: AFFECT LABILITY
     Dosage: UNK (RESTARTED)
     Route: 065
     Dates: start: 20181107, end: 20181212
  2. NUEDEXTA [Suspect]
     Active Substance: DEXTROMETHORPHAN HYDROBROMIDE\QUINIDINE SULFATE
     Dosage: 1 DF, QD (FOR TWO WEEKS)
     Route: 065
     Dates: start: 2018, end: 2018
  3. RISPERDAL [Concomitant]
     Active Substance: RISPERIDONE
     Indication: PSYCHOTIC DISORDER
     Dosage: 1.25 MG, QD
     Route: 048
     Dates: start: 20181004, end: 20181212

REACTIONS (4)
  - Gait inability [Not Recovered/Not Resolved]
  - General physical health deterioration [Not Recovered/Not Resolved]
  - Pneumonia [Fatal]
  - Product use issue [Unknown]

NARRATIVE: CASE EVENT DATE: 2018
